FAERS Safety Report 23435167 (Version 1)
Quarter: 2024Q1

REPORT INFORMATION
  Report Type: Spontaneous
  Country: RU (occurrence: RU)
  Receive Date: 20240123
  Receipt Date: 20240123
  Transmission Date: 20240410
  Serious: Yes (Life-Threatening)
  Sender: FDA-Public Use
  Company Number: RU-SANDOZ-SDZ2024RU007120

PATIENT
  Sex: Female
  Weight: 53 kg

DRUGS (2)
  1. CHLOROPYRAMINE [Suspect]
     Active Substance: CHLOROPYRAMINE
     Indication: Urticaria
     Dosage: 20 MG IV, ONCE
     Route: 042
     Dates: start: 20240120, end: 20240120
  2. METHOTREXATE SODIUM [Suspect]
     Active Substance: METHOTREXATE SODIUM
     Indication: Chemotherapy
     Dosage: 19440MG, IV DRIP (ONCE)
     Route: 048
     Dates: start: 20240117, end: 20240117

REACTIONS (8)
  - Toxic encephalopathy [Recovered/Resolved]
  - Rash [Recovered/Resolved]
  - Hypoaesthesia [Recovered/Resolved]
  - Nausea [Recovered/Resolved]
  - Vomiting [Recovered/Resolved]
  - Generalised tonic-clonic seizure [Recovered/Resolved]
  - Bronchospasm [Recovered/Resolved]
  - Loss of consciousness [Recovered/Resolved]

NARRATIVE: CASE EVENT DATE: 20240120
